FAERS Safety Report 20921137 (Version 1)
Quarter: 2022Q2

REPORT INFORMATION
  Report Type: Spontaneous
  Country: US (occurrence: None)
  Receive Date: 20220606
  Receipt Date: 20220606
  Transmission Date: 20220721
  Serious: Yes (Other)
  Sender: FDA-Public Use
  Company Number: None

PATIENT
  Age: 52 Year
  Sex: Female
  Weight: 90 kg

DRUGS (1)
  1. CANNABIDIOL\HERBALS [Suspect]
     Active Substance: CANNABIDIOL\HERBALS
     Indication: Seizure
     Route: 055
     Dates: start: 20220604, end: 20220605

REACTIONS (4)
  - Feeling abnormal [None]
  - Pain [None]
  - Seizure [None]
  - Product label issue [None]

NARRATIVE: CASE EVENT DATE: 20220605
